FAERS Safety Report 19819497 (Version 1)
Quarter: 2021Q3

REPORT INFORMATION
  Report Type: Spontaneous
  Country: CA (occurrence: CA)
  Receive Date: 20210913
  Receipt Date: 20210913
  Transmission Date: 20211014
  Serious: Yes (Death, Other)
  Sender: FDA-Public Use
  Company Number: CA-ACCORD-237946

PATIENT
  Age: 89 Year
  Sex: Male

DRUGS (3)
  1. RISEDRONIC ACID [Suspect]
     Active Substance: RISEDRONIC ACID
     Indication: RESTLESSNESS
     Route: 065
  2. HALOPERIDOL. [Suspect]
     Active Substance: HALOPERIDOL
     Indication: RESTLESSNESS
     Route: 065
  3. QUETIAPINE/QUETIAPINE FUMARATE [Suspect]
     Active Substance: QUETIAPINE FUMARATE
     Indication: RESTLESSNESS
     Route: 048

REACTIONS (9)
  - Musculoskeletal stiffness [Fatal]
  - Blood pressure decreased [Fatal]
  - Muscle spasms [Fatal]
  - Speech disorder [Fatal]
  - Swelling [Fatal]
  - Off label use [Unknown]
  - Confusional state [Fatal]
  - General physical health deterioration [Fatal]
  - Renal disorder [Fatal]
